FAERS Safety Report 7795647-9 (Version None)
Quarter: 2011Q4

REPORT INFORMATION
  Report Type: 
  Country: None (occurrence: None)
  Receive Date: 20111004
  Receipt Date: 20110930
  Transmission Date: 20120403
  Serious: Yes (Hospitalization)
  Sender: FDA-Public Use
  Company Number: US-GLAXOSMITHKLINE-B0697812A

PATIENT
  Age: 74 Year
  Sex: Female
  Weight: 85.9 kg

DRUGS (12)
  1. NORVASC [Concomitant]
  2. CLARINEX [Concomitant]
  3. NITROGLYCERIN [Concomitant]
  4. ZOCOR [Concomitant]
  5. SINGULAIR [Concomitant]
  6. MOBIC [Concomitant]
  7. ACTONEL [Concomitant]
  8. COUMADIN [Concomitant]
  9. ROSIGLITAZONE MALEATE [Suspect]
     Indication: DIABETES MELLITUS
     Route: 048
  10. PRILOSEC [Concomitant]
  11. LASIX [Concomitant]
  12. ISOSORBIDE MONONITRATE [Concomitant]

REACTIONS (2)
  - ANGINA UNSTABLE [None]
  - CARDIAC FAILURE CONGESTIVE [None]
